FAERS Safety Report 9500998 (Version 1)
Quarter: 2013Q1

REPORT INFORMATION
  Report Type: Spontaneous
  Country: US (occurrence: None)
  Receive Date: 20130116
  Receipt Date: 20130116
  Transmission Date: 20140127
  Serious: No
  Sender: FDA-Public Use
  Company Number: CTI_01494_2012

PATIENT
  Sex: 0

DRUGS (1)
  1. CUROSURF [Suspect]
     Indication: NEONATAL RESPIRATORY DISTRESS SYNDROME
     Dosage: (DF {240MG 3ML VIAL

REACTIONS (1)
  - Pulmonary haemorrhage [None]
